FAERS Safety Report 8453775-9 (Version None)
Quarter: 2012Q2

REPORT INFORMATION
  Report Type: 
  Country: None (occurrence: None)
  Receive Date: 20120620
  Receipt Date: 20120607
  Transmission Date: 20120825
  Serious: No
  Sender: FDA-Public Use
  Company Number: US-ASTRAZENECA-2012SE38735

PATIENT
  Age: 60 Year
  Sex: Female
  Weight: 42.8 kg

DRUGS (4)
  1. SYMBICORT [Suspect]
     Indication: CHRONIC OBSTRUCTIVE PULMONARY DISEASE
     Dosage: UNKNOWN STRENGTH, THREE PUFFS TWICE A DAY
     Route: 055
  2. VENTOLIN [Concomitant]
     Dosage: THREE TIMES A DAY, AS NEEDED
  3. SYMBICORT [Suspect]
     Dosage: 160/4.5 MCG, TWO PUFFS TWICE A DAY
     Route: 055
  4. IPRATROPIUM BROMIDE [Concomitant]
     Dosage: THREE TO FOUR TIMES A DAY

REACTIONS (9)
  - EXERCISE TOLERANCE DECREASED [None]
  - PULMONARY MASS [None]
  - DYSPNOEA EXERTIONAL [None]
  - WEIGHT INCREASED [None]
  - POOR QUALITY SLEEP [None]
  - CHEST DISCOMFORT [None]
  - NEPHROLITHIASIS [None]
  - HYPERTENSION [None]
  - COUGH [None]
